FAERS Safety Report 6224678-5 (Version None)
Quarter: 2009Q2

REPORT INFORMATION
  Report Type: 
  Country: None (occurrence: None)
  Receive Date: 20090612
  Receipt Date: 20090524
  Transmission Date: 20091009
  Serious: No
  Sender: FDA-Public Use
  Company Number: US-ABBOTT-09P-163-0564804-00

PATIENT
  Sex: Male
  Weight: 74.91 kg

DRUGS (3)
  1. HUMIRA [Suspect]
     Indication: CROHN'S DISEASE
  2. HUMIRA [Suspect]
     Dates: start: 20080429, end: 20080429
  3. HUMIRA [Suspect]
     Dates: start: 20080415, end: 20080415

REACTIONS (8)
  - CHILLS [None]
  - FATIGUE [None]
  - INJECTION SITE HAEMATOMA [None]
  - INJECTION SITE INDURATION [None]
  - INJECTION SITE PAPULE [None]
  - INJECTION SITE REACTION [None]
  - PYREXIA [None]
  - RASH [None]
